FAERS Safety Report 5505674-X (Version None)
Quarter: 2007Q4

REPORT INFORMATION
  Report Type: 
  Country: None (occurrence: None)
  Receive Date: 20071102
  Receipt Date: 20071016
  Transmission Date: 20080405
  Serious: Yes (Other)
  Sender: FDA-Public Use
  Company Number: GB-PFIZER INC-2007075436

PATIENT
  Sex: Male

DRUGS (2)
  1. AMLODIPINE [Suspect]
     Dosage: DAILY DOSE:10MG
     Route: 048
  2. PERINDOPRIL [Concomitant]

REACTIONS (2)
  - BLOOD PRESSURE INCREASED [None]
  - GENERAL PHYSICAL HEALTH DETERIORATION [None]
